FAERS Safety Report 12653011 (Version 1)
Quarter: 2016Q3

REPORT INFORMATION
  Report Type: Report from Study
  Country: US (occurrence: US)
  Receive Date: 20160815
  Receipt Date: 20160815
  Transmission Date: 20161109
  Serious: Yes (Other)
  Sender: FDA-Public Use
  Company Number: US-ABBVIE-16P-163-1700290-00

PATIENT
  Sex: Female

DRUGS (1)
  1. SYNTHROID [Suspect]
     Active Substance: LEVOTHYROXINE SODIUM
     Indication: PRODUCT USED FOR UNKNOWN INDICATION
     Route: 048

REACTIONS (12)
  - Conductive deafness [Unknown]
  - Bursitis [Unknown]
  - Atrial fibrillation [Unknown]
  - Pain in extremity [Unknown]
  - Diarrhoea [Unknown]
  - Spinal column stenosis [Unknown]
  - Hypertensive nephropathy [Unknown]
  - Essential hypertension [Unknown]
  - Back pain [Unknown]
  - Haemorrhoids [Unknown]
  - Chondropathy [Unknown]
  - Blood glucose abnormal [Unknown]
